FAERS Safety Report 4877429-0 (Version None)
Quarter: 2006Q1

REPORT INFORMATION
  Report Type: 
  Country: None (occurrence: None)
  Receive Date: 20060109
  Receipt Date: 20051227
  Transmission Date: 20060701
  Serious: Yes (Death, Other)
  Sender: FDA-Public Use
  Company Number: 2005145153

PATIENT
  Age: 74 Year
  Sex: Female

DRUGS (17)
  1. ZYVOX [Suspect]
     Indication: STAPHYLOCOCCAL INFECTION
     Dosage: 1200 MG (600 MG, 1 IN 12 HR), INTRAVENOUS
     Route: 042
     Dates: start: 20050913, end: 20050919
  2. ZYVOX [Suspect]
     Indication: STAPHYLOCOCCAL INFECTION
     Dosage: ORAL
     Route: 048
     Dates: start: 20050919
  3. PERPHENAZINE [Suspect]
     Indication: SENILE PSYCHOSIS
     Dosage: ORAL
     Route: 048
     Dates: start: 20051009, end: 20051019
  4. LASIX [Concomitant]
  5. ZOFRAN [Concomitant]
  6. PERCOCET [Concomitant]
  7. MULTIVITAMIN [Concomitant]
  8. ACETAMINOPHEN [Concomitant]
  9. DOCUSATE (DOCUSATE) [Concomitant]
  10. SENNA (SENNA) [Concomitant]
  11. AMBIEN [Concomitant]
  12. LEVOTHYROXINE SODIUM [Concomitant]
  13. DILTIAZEM [Concomitant]
  14. PANTOPRAZOLE SODIUM [Concomitant]
  15. IBUPROFEN [Concomitant]
  16. APAP (PARACETAMOL) [Concomitant]
  17. HEPARIN [Concomitant]

REACTIONS (5)
  - ARTHRALGIA [None]
  - ASTHENIA [None]
  - PRURITUS [None]
  - PYREXIA [None]
  - THROMBOCYTOPENIA [None]
